FAERS Safety Report 25960224 (Version 1)
Quarter: 2025Q4

REPORT INFORMATION
  Report Type: Spontaneous
  Country: US (occurrence: US)
  Receive Date: 20251026
  Receipt Date: 20251026
  Transmission Date: 20260118
  Serious: Yes (Other)
  Sender: JOHNSON AND JOHNSON
  Company Number: US-JNJFOC-20251001050

PATIENT
  Sex: Male

DRUGS (2)
  1. SPRAVATO [Suspect]
     Active Substance: ESKETAMINE
     Indication: Product used for unknown indication
     Route: 045
  2. SPORANOX [Suspect]
     Active Substance: ITRACONAZOLE
     Indication: Product used for unknown indication

REACTIONS (2)
  - Transgender operation [Unknown]
  - Hypopnoea [Unknown]

NARRATIVE: CASE EVENT DATE: 20250101
